FAERS Safety Report 10173003 (Version 2)
Quarter: 2014Q2

REPORT INFORMATION
  Report Type: Spontaneous
  Country: CN (occurrence: CN)
  Receive Date: 20140515
  Receipt Date: 20140515
  Transmission Date: 20141212
  Serious: Yes (Other)
  Sender: FDA-Public Use
  Company Number: PHHY2013CN115192

PATIENT
  Sex: Male

DRUGS (4)
  1. LOTENSIN [Suspect]
     Indication: HYPERTENSION
     Dosage: 10 MG, QD(IN THE AFTERNOON)
     Route: 048
     Dates: start: 20060101
  2. LOTENSIN [Suspect]
     Indication: RENAL IMPAIRMENT
     Dates: start: 20130827
  3. PLENDIL [Concomitant]
     Indication: HYPERTENSION
     Dosage: 5 MG, QD
     Route: 048
     Dates: start: 20111001, end: 20131014
  4. BAYASPIRIN [Concomitant]
     Indication: ANTICOAGULANT THERAPY
     Dosage: 100 MG, QD
     Route: 048
     Dates: end: 20131014

REACTIONS (3)
  - Product taste abnormal [Unknown]
  - Blood pressure increased [Unknown]
  - Drug ineffective [Unknown]
